FAERS Safety Report 7031255-5 (Version None)
Quarter: 2010Q4

REPORT INFORMATION
  Report Type: 
  Country: None (occurrence: None)
  Receive Date: 20101006
  Receipt Date: 20101001
  Transmission Date: 20110411
  Serious: Yes (Other)
  Sender: FDA-Public Use
  Company Number: A0884419A

PATIENT
  Age: 60 Year
  Sex: Male

DRUGS (2)
  1. AVODART [Suspect]
     Route: 065
  2. FLOMAX [Suspect]
     Route: 065

REACTIONS (4)
  - CALCULUS URINARY [None]
  - DRUG INEFFECTIVE [None]
  - HAEMORRHAGE [None]
  - ILL-DEFINED DISORDER [None]
